FAERS Safety Report 8558884-1 (Version None)
Quarter: 2012Q3

REPORT INFORMATION
  Report Type: 
  Country: None (occurrence: None)
  Receive Date: 20120801
  Receipt Date: 20120723
  Transmission Date: 20120928
  Serious: Yes (Disabling, Other)
  Sender: FDA-Public Use
  Company Number: US-MSD-1207USA010626

PATIENT

DRUGS (42)
  1. GLUCOPHAGE [Suspect]
  2. LUVOX [Suspect]
  3. LOTRIMIN [Suspect]
  4. PLAVIX [Suspect]
  5. ALPRAZOLAM [Suspect]
  6. METFORMIN HYDROCHLORIDE [Suspect]
     Dosage: 500 MG, UNK
  7. FOLIC ACID [Concomitant]
  8. PILOCARPINE [Concomitant]
  9. TIMOLOL MALEATE [Concomitant]
     Dosage: 1 GTT, 4*/DAY
     Route: 047
  10. LANTUS [Concomitant]
     Dosage: 12 IU, UNK
  11. XALATAN [Suspect]
     Route: 047
  12. CYCLOSPORINE [Suspect]
  13. PROSCAR [Suspect]
     Route: 048
  14. IBUPROFEN (ADVIL) [Suspect]
     Dosage: 200 MG, PRN
  15. LUMIGAN [Concomitant]
     Dosage: 1 GTT, QD
  16. PRAVASTATIN SODIUM [Concomitant]
     Dosage: 40 MG, UNK
  17. CODEINE [Suspect]
  18. THERA TEARS [Concomitant]
  19. POTASSIUM CHLORIDE - USP [Concomitant]
     Dosage: 20 MG, UNK
     Route: 048
  20. VICODIN [Concomitant]
  21. COREG [Suspect]
  22. METOPROLOL TARTRATE [Suspect]
     Dosage: 25 MG, BID
  23. DIGOXIN [Concomitant]
     Dosage: 0.125 MG, ONE PILL ONCE A DAY AND TWO PILLS ONCE A DAY
  24. ASPIRIN [Concomitant]
     Dosage: 50 MG, UNK
  25. TRAMADOL HYDROCHLORIDE [Suspect]
  26. MOTRIN [Suspect]
  27. DIAZEPAM [Concomitant]
     Dosage: 5 MG, UNK
  28. FUROSEMIDE [Concomitant]
  29. COZAAR [Concomitant]
  30. BILBERRY [Concomitant]
  31. LIPITOR [Suspect]
  32. ZETIA [Suspect]
     Route: 048
  33. TOPROL-XL [Suspect]
  34. OXYCODONE HCL [Concomitant]
  35. ASPIRIN [Concomitant]
     Dosage: 81 MG, BID
  36. OMEGA-3 MARINE TRIGLYCERIDES [Concomitant]
  37. ZOCOR [Suspect]
     Route: 048
  38. PROZAC [Suspect]
  39. REGLAN [Suspect]
  40. VIAGRA [Suspect]
  41. CLOZAPINE [Concomitant]
  42. ALLOPURINOL [Concomitant]
     Dosage: 300 MG, UNK

REACTIONS (14)
  - ABASIA [None]
  - BACK PAIN [None]
  - ASTHENIA [None]
  - SLEEP DISORDER [None]
  - FATIGUE [None]
  - MYALGIA [None]
  - BLOOD GLUCOSE INCREASED [None]
  - CONSTIPATION [None]
  - DRUG HYPERSENSITIVITY [None]
  - SKIN IRRITATION [None]
  - DYSPNOEA [None]
  - NAUSEA [None]
  - HIP ARTHROPLASTY [None]
  - VOMITING [None]
